FAERS Safety Report 9732619 (Version 2)
Quarter: 2013Q4

REPORT INFORMATION
  Report Type: Report from Study
  Country: US (occurrence: US)
  Receive Date: 20131204
  Receipt Date: 20131224
  Transmission Date: 20140711
  Serious: No
  Sender: FDA-Public Use
  Company Number: US-ROCHE-1309090

PATIENT
  Age: 47 Year
  Sex: Female

DRUGS (2)
  1. DCDT2980S (ANTI-CD22-VC-MMAE) [Suspect]
     Indication: B-CELL LYMPHOMA RECURRENT
     Route: 065
  2. RITUXIMAB [Suspect]
     Indication: B-CELL LYMPHOMA RECURRENT
     Route: 065

REACTIONS (1)
  - Visual impairment [Unknown]
